FAERS Safety Report 6674219-3 (Version None)
Quarter: 2010Q2

REPORT INFORMATION
  Report Type: 
  Country: None (occurrence: None)
  Receive Date: 20100409
  Receipt Date: 20100331
  Transmission Date: 20101027
  Serious: Yes (Hospitalization, Disabling)
  Sender: FDA-Public Use
  Company Number: DE-NAPPMUNDI-DEU-2010-0006133

PATIENT
  Age: 79 Year
  Sex: Female

DRUGS (2)
  1. MORPHINE SULFATE [Suspect]
     Indication: PAIN
  2. OPIOIDS [Suspect]
     Indication: PAIN
     Route: 062

REACTIONS (3)
  - COMA [None]
  - DISABILITY [None]
  - HALLUCINATION [None]
